FAERS Safety Report 10539464 (Version 2)
Quarter: 2014Q4

REPORT INFORMATION
  Report Type: Other
  Country: CA (occurrence: CA)
  Receive Date: 20141023
  Receipt Date: 20141023
  Transmission Date: 20150529
  Serious: Yes (Other)
  Sender: FDA-Public Use
  Company Number: CA-GSKPPD-2014GSK017147

PATIENT

DRUGS (1)
  1. AVANDIA [Suspect]
     Active Substance: ROSIGLITAZONE MALEATE
     Indication: DIABETES MELLITUS
     Route: 048

REACTIONS (9)
  - Cardiac failure congestive [None]
  - Acute coronary syndrome [None]
  - Sinus tachycardia [None]
  - Atrioventricular block [None]
  - Angina pectoris [None]
  - Ischaemia [None]
  - Sinus arrhythmia [None]
  - Palpitations [None]
  - Coronary artery disease [None]
